FAERS Safety Report 6522320-7 (Version None)
Quarter: 2009Q4

REPORT INFORMATION
  Report Type: 
  Country: None (occurrence: None)
  Receive Date: 20091230
  Receipt Date: 20091222
  Transmission Date: 20100525
  Serious: Yes (Hospitalization)
  Sender: FDA-Public Use
  Company Number: B0616255A

PATIENT
  Sex: Female

DRUGS (11)
  1. RANIPLEX [Suspect]
     Indication: DRUG USE FOR UNKNOWN INDICATION
     Dosage: 300MG PER DAY
     Route: 048
     Dates: end: 20091015
  2. BIPROFENID [Suspect]
     Indication: DRUG USE FOR UNKNOWN INDICATION
     Route: 048
     Dates: start: 20090928, end: 20091015
  3. DAFALGAN CODEINE [Suspect]
     Indication: DRUG USE FOR UNKNOWN INDICATION
     Route: 048
     Dates: start: 20090928, end: 20091015
  4. TRANSIPEG [Suspect]
     Indication: DRUG USE FOR UNKNOWN INDICATION
     Route: 048
     Dates: start: 20090928, end: 20091015
  5. TAHOR [Suspect]
     Indication: DRUG USE FOR UNKNOWN INDICATION
     Dosage: 40MG PER DAY
     Route: 048
     Dates: end: 20091015
  6. CALTRATE [Suspect]
     Indication: DRUG USE FOR UNKNOWN INDICATION
     Dosage: 500MG TWICE PER DAY
     Route: 048
     Dates: end: 20091015
  7. DIAMICRON [Suspect]
     Indication: DRUG USE FOR UNKNOWN INDICATION
     Dosage: 30MG FOUR TIMES PER DAY
     Route: 048
     Dates: end: 20091015
  8. GLUCOPHAGE [Suspect]
     Indication: DRUG USE FOR UNKNOWN INDICATION
     Dosage: 1000MG FOUR TIMES PER DAY
     Route: 048
     Dates: end: 20091015
  9. FLECAINIDE ACETATE [Suspect]
     Indication: DRUG USE FOR UNKNOWN INDICATION
     Dosage: 100MG PER DAY
     Route: 048
     Dates: end: 20091015
  10. VASTAREL [Suspect]
     Indication: DRUG USE FOR UNKNOWN INDICATION
     Dosage: 35MG TWICE PER DAY
     Route: 048
     Dates: end: 20091015
  11. ZELITREX [Concomitant]
     Indication: DRUG USE FOR UNKNOWN INDICATION
     Route: 048

REACTIONS (7)
  - ANURIA [None]
  - DECREASED APPETITE [None]
  - DEHYDRATION [None]
  - DIARRHOEA [None]
  - GENERAL PHYSICAL HEALTH DETERIORATION [None]
  - RENAL FAILURE ACUTE [None]
  - VOMITING [None]
